FAERS Safety Report 17690413 (Version 1)
Quarter: 2020Q2

REPORT INFORMATION
  Report Type: Spontaneous
  Country: US (occurrence: US)
  Receive Date: 20200421
  Receipt Date: 20200421
  Transmission Date: 20200714
  Serious: No
  Sender: FDA-Public Use
  Company Number: US-ALNYLAM PHARMACEUTICALS, INC.-ALN-2020-000462

PATIENT
  Sex: Female

DRUGS (2)
  1. GIVLAARI [Suspect]
     Active Substance: GIVOSIRAN SODIUM
     Indication: PORPHYRIA ACUTE
     Route: 058
  2. PANHEMATIN [Concomitant]
     Active Substance: HEMIN
     Indication: PORPHYRIA ACUTE

REACTIONS (6)
  - Condition aggravated [Unknown]
  - Injection site pruritus [Unknown]
  - Rash [Unknown]
  - Malaise [Unknown]
  - Injection site pain [Unknown]
  - Stress [Unknown]
